FAERS Safety Report 6703606-X (Version None)
Quarter: 2010Q2

REPORT INFORMATION
  Report Type: 
  Country: None (occurrence: None)
  Receive Date: 20100430
  Receipt Date: 20100427
  Transmission Date: 20101027
  Serious: Yes (Death)
  Sender: FDA-Public Use
  Company Number: PHHY2010BR07874

PATIENT
  Age: 71 Year
  Sex: Female
  Weight: 60 kg

DRUGS (1)
  1. EXFORGE [Suspect]
     Indication: HYPERTENSION
     Dosage: ONE TABLET (320/10 MG) DAILY
     Route: 048
     Dates: start: 20091201

REACTIONS (3)
  - CARDIAC DISORDER [None]
  - SWELLING [None]
  - WOUND [None]
